FAERS Safety Report 19506309 (Version 2)
Quarter: 2025Q2

REPORT INFORMATION
  Report Type: Spontaneous
  Country: IT (occurrence: IT)
  Receive Date: 20210708
  Receipt Date: 20250627
  Transmission Date: 20250716
  Serious: Yes (Other)
  Sender: AUROBINDO
  Company Number: IT-KRKA-IT2021K08530LIT

PATIENT
  Age: 59 Year
  Sex: Female

DRUGS (1)
  1. IMATINIB [Suspect]
     Active Substance: IMATINIB
     Indication: Chronic myeloid leukaemia
     Dosage: 40 MILLIGRAM, ONCE A DAY(400 MG, PER DAY )
     Route: 065

REACTIONS (1)
  - Pyoderma gangrenosum [Recovering/Resolving]
